FAERS Safety Report 4703135-9 (Version None)
Quarter: 2005Q2

REPORT INFORMATION
  Report Type: 
  Country: None (occurrence: None)
  Receive Date: 20050629
  Receipt Date: 20050616
  Transmission Date: 20051028
  Serious: Yes (Disabling)
  Sender: FDA-Public Use
  Company Number: CH-GLAXOSMITHKLINE-B0384827A

PATIENT
  Age: 78 Year
  Sex: Female

DRUGS (3)
  1. LAMICTAL [Suspect]
     Indication: EPILEPSY
     Route: 048
     Dates: start: 20050201
  2. CARBAMAZEPINE [Concomitant]
     Indication: EPILEPSY
     Route: 048
  3. DAFALGAN [Concomitant]
     Indication: BONE PAIN
     Route: 048

REACTIONS (3)
  - CHORIORETINAL DISORDER [None]
  - DISEASE PROGRESSION [None]
  - VISUAL ACUITY REDUCED [None]
